FAERS Safety Report 26027415 (Version 1)
Quarter: 2025Q4

REPORT INFORMATION
  Report Type: Report from Study
  Country: CN (occurrence: CN)
  Receive Date: 20251111
  Receipt Date: 20251111
  Transmission Date: 20260118
  Serious: Yes (Hospitalization)
  Sender: NOVARTIS
  Company Number: CN-002147023-NVSC2025CN147719

PATIENT
  Age: 50 Year
  Sex: Male
  Weight: 50 kg

DRUGS (2)
  1. FABHALTA [Suspect]
     Active Substance: IPTACOPAN HYDROCHLORIDE
     Indication: Paroxysmal nocturnal haemoglobinuria
     Dosage: 200 MG
     Route: 048
     Dates: start: 20250714, end: 20250915
  2. FABHALTA [Suspect]
     Active Substance: IPTACOPAN HYDROCHLORIDE
     Dosage: 200 MG
     Route: 048
     Dates: start: 20250917, end: 20251027

REACTIONS (5)
  - Pyrexia [Recovered/Resolved]
  - Chills [Unknown]
  - Chromaturia [Unknown]
  - Loss of consciousness [Not Recovered/Not Resolved]
  - Sepsis [Not Recovered/Not Resolved]

NARRATIVE: CASE EVENT DATE: 20250901
